FAERS Safety Report 10176991 (Version 3)
Quarter: 2014Q2

REPORT INFORMATION
  Report Type: Spontaneous
  Country: BE (occurrence: BE)
  Receive Date: 20140516
  Receipt Date: 20140630
  Transmission Date: 20141212
  Serious: Yes (Hospitalization, Other)
  Sender: FDA-Public Use
  Company Number: BE-B.I. PHARMACEUTICALS,INC./RIDGEFIELD-2014-BI-21566BL

PATIENT
  Age: 58 Year
  Sex: Male
  Weight: 80 kg

DRUGS (10)
  1. TRAJENTA [Suspect]
     Indication: GLYCOSYLATED HAEMOGLOBIN INCREASED
     Route: 048
     Dates: start: 20130228, end: 20140320
  2. SERTRALINE [Concomitant]
     Dosage: DOSE PER APPLICATION AND DAILY DOSE:50 UNITS
     Route: 048
     Dates: start: 200703
  3. TOTALIP [Concomitant]
     Dosage: DOSE PER APPLICATION AND DAILY DOSE: 20 UNITS
     Route: 048
     Dates: start: 20090519
  4. TILDIEM [Concomitant]
     Dosage: DOSE PER APPLICATION AND DAILY DOSE: 200
     Route: 048
     Dates: start: 20090519
  5. PANTOMED [Concomitant]
     Dosage: DOSE PER APPLICATION AND DAILY DOSE: 40
     Route: 048
     Dates: start: 20120604
  6. CLOPIDOGREL [Concomitant]
     Dosage: DOSE PER APPLICATION AND DAILY DOSE: 75
     Route: 048
     Dates: start: 20100510
  7. ASAFLOW [Concomitant]
     Dosage: DOSE PER APPLICATION AND DAILY DOSE: 80
     Route: 048
     Dates: start: 20090519
  8. METFORMAX [Concomitant]
     Dosage: DOSE PER APPLICATION AND DAILY DOSE: 850
     Route: 048
     Dates: start: 20111119
  9. DAFLON [Concomitant]
     Dosage: DOSE PER APPLICATION AND DAILY DOSE: 500
     Route: 048
     Dates: start: 20100528
  10. NOVONORM [Concomitant]
     Dosage: DOSE PER APPLICATION AND DAILY DOSE: 0.5
     Route: 048
     Dates: start: 20131127

REACTIONS (3)
  - Pancreatitis [Not Recovered/Not Resolved]
  - Abdominal pain upper [Recovered/Resolved]
  - Adenocarcinoma pancreas [Not Recovered/Not Resolved]
